FAERS Safety Report 7954501-X (Version None)
Quarter: 2011Q4

REPORT INFORMATION
  Report Type: 
  Country: None (occurrence: None)
  Receive Date: 20111202
  Receipt Date: 20111122
  Transmission Date: 20120403
  Serious: Yes (Other)
  Sender: FDA-Public Use
  Company Number: US-JNJFOC-20111110086

PATIENT
  Sex: Female

DRUGS (2)
  1. ARTANE [Concomitant]
     Indication: DYSTONIA
     Route: 048
     Dates: start: 20110101
  2. REMICADE [Suspect]
     Indication: RHEUMATOID ARTHRITIS
     Route: 042
     Dates: start: 20110901

REACTIONS (2)
  - MUSCLE CONTRACTURE [None]
  - PAIN IN EXTREMITY [None]
